FAERS Safety Report 6061828-8 (Version None)
Quarter: 2009Q1

REPORT INFORMATION
  Report Type: 
  Country: None (occurrence: None)
  Receive Date: 20090202
  Receipt Date: 20090122
  Transmission Date: 20090719
  Serious: Yes (Hospitalization)
  Sender: FDA-Public Use
  Company Number: US-ELI_LILLY_AND_COMPANY-US200901004288

PATIENT
  Sex: Female

DRUGS (9)
  1. BYETTA [Suspect]
     Indication: TYPE 2 DIABETES MELLITUS
     Dosage: 5 UG, 2/D
     Route: 058
     Dates: start: 20050101, end: 20060101
  2. BYETTA [Suspect]
     Dosage: 10 UG, 2/D
     Route: 058
     Dates: start: 20060101, end: 20060501
  3. BYETTA [Suspect]
     Dosage: 10 UG, 2/D
     Route: 058
     Dates: start: 20060501, end: 20080101
  4. BYETTA [Suspect]
     Dosage: 10 UG, 2/D
     Route: 058
     Dates: start: 20090101
  5. AMARYL [Concomitant]
     Indication: BLOOD GLUCOSE ABNORMAL
     Dosage: 4 MG, EACH MORNING
  6. ACTOS [Concomitant]
     Indication: BLOOD GLUCOSE ABNORMAL
     Dosage: 10 MG, EACH EVENING
     Route: 058
  7. ANTIHYPERTENSIVES [Concomitant]
     Indication: BLOOD PRESSURE
  8. CRESTOR [Concomitant]
     Indication: BLOOD CHOLESTEROL
  9. LASIX [Concomitant]
     Indication: OEDEMA
     Dosage: UNK, AS NEEDED

REACTIONS (10)
  - ARTHRITIS [None]
  - BLOOD GLUCOSE DECREASED [None]
  - BLOOD GLUCOSE INCREASED [None]
  - FALL [None]
  - FEELING ABNORMAL [None]
  - HIP FRACTURE [None]
  - STRESS [None]
  - TREMOR [None]
  - UPPER LIMB FRACTURE [None]
  - VISION BLURRED [None]
